FAERS Safety Report 21960020 (Version 1)
Quarter: 2023Q1

REPORT INFORMATION
  Report Type: Spontaneous
  Country: FR (occurrence: FR)
  Receive Date: 20230206
  Receipt Date: 20230206
  Transmission Date: 20230418
  Serious: Yes (Other)
  Sender: FDA-Public Use
  Company Number: FR-SUN PHARMACEUTICAL INDUSTRIES LTD-2023R1-377100

PATIENT
  Age: 65 Year

DRUGS (2)
  1. METHOTREXATE [Suspect]
     Active Substance: METHOTREXATE
     Indication: Adenocarcinoma
     Dosage: 10 MILLIGRAM, WEEKLY
     Route: 065
  2. METHYLPREDNISOLONE [Suspect]
     Active Substance: METHYLPREDNISOLONE
     Indication: Product used for unknown indication
     Dosage: 120 MILLIGRAM, TID
     Route: 065

REACTIONS (3)
  - Drug resistance [Unknown]
  - Drug dependence [Unknown]
  - Disease recurrence [Unknown]
